FAERS Safety Report 4472246-8 (Version None)
Quarter: 2004Q4

REPORT INFORMATION
  Report Type: 
  Country: None (occurrence: None)
  Receive Date: 20041012
  Receipt Date: 20041007
  Transmission Date: 20050328
  Serious: Yes (Hospitalization)
  Sender: FDA-Public Use
  Company Number: US-MERCK-0410USA01189

PATIENT
  Age: 50 Year
  Sex: Female

DRUGS (2)
  1. GLUCOTROL [Concomitant]
     Route: 065
  2. VIOXX [Suspect]
     Indication: ARTHRITIS
     Route: 048
     Dates: start: 19970101, end: 20040901

REACTIONS (1)
  - CEREBROVASCULAR ACCIDENT [None]
